FAERS Safety Report 6636051-6 (Version None)
Quarter: 2010Q1

REPORT INFORMATION
  Report Type: 
  Country: None (occurrence: None)
  Receive Date: 20100316
  Receipt Date: 20100304
  Transmission Date: 20100710
  Serious: Yes (Hospitalization, Other)
  Sender: FDA-Public Use
  Company Number: PHHY2010US13860

PATIENT
  Sex: Male
  Weight: 55 kg

DRUGS (1)
  1. EXJADE [Suspect]
     Indication: SICKLE CELL ANAEMIA
     Dosage: 1500 MG DAILY
     Route: 048

REACTIONS (2)
  - CHEST PAIN [None]
  - SICKLE CELL ANAEMIA WITH CRISIS [None]
